FAERS Safety Report 10911524 (Version 3)
Quarter: 2015Q2

REPORT INFORMATION
  Report Type: Spontaneous
  Country: US (occurrence: US)
  Receive Date: 20150313
  Receipt Date: 20150407
  Transmission Date: 20150821
  Serious: No
  Sender: FDA-Public Use
  Company Number: US-009507513-1503USA005781

PATIENT
  Age: 19 Year
  Sex: Female

DRUGS (1)
  1. NEXPLANON [Suspect]
     Active Substance: ETONOGESTREL
     Indication: CONTRACEPTION
     Dosage: 1 ROD, THREE YEARS
     Route: 059
     Dates: start: 20140716, end: 20150310

REACTIONS (3)
  - Mood swings [Recovering/Resolving]
  - Depression [Recovering/Resolving]
  - Device breakage [Recovered/Resolved]
